FAERS Safety Report 9805330 (Version 1)
Quarter: 2014Q1

REPORT INFORMATION
  Report Type: Spontaneous
  Country: US (occurrence: None)
  Receive Date: 20140108
  Receipt Date: 20140108
  Transmission Date: 20141002
  Serious: Yes (Hospitalization, Other)
  Sender: FDA-Public Use
  Company Number: None

PATIENT
  Age: 49 Year
  Sex: Female
  Weight: 59.88 kg

DRUGS (9)
  1. SUPREP BOWEL PREP KIT [Suspect]
     Indication: BOWEL PREPARATION
     Route: 048
     Dates: start: 20131208, end: 20131208
  2. SUPREP BOWEL PREP KIT [Suspect]
     Indication: COLONOSCOPY
     Route: 048
     Dates: start: 20131208, end: 20131208
  3. ALLEGRA [Concomitant]
  4. SERTRALINE [Concomitant]
  5. MULTIPLE VITAMINS [Concomitant]
  6. CALCIUM [Concomitant]
  7. VITAMIN D [Concomitant]
  8. FISH OIL [Concomitant]
  9. SUDAFED [Concomitant]

REACTIONS (3)
  - Vomiting [None]
  - Dehydration [None]
  - Blood potassium decreased [None]
